FAERS Safety Report 18940271 (Version 1)
Quarter: 2021Q1

REPORT INFORMATION
  Report Type: Spontaneous
  Country: US (occurrence: US)
  Receive Date: 20210225
  Receipt Date: 20210225
  Transmission Date: 20210420
  Serious: No
  Sender: FDA-Public Use
  Company Number: US-VERTEX PHARMACEUTICALS-2021-002672

PATIENT
  Age: 47 Year
  Sex: Female

DRUGS (1)
  1. TRIKAFTA [Suspect]
     Active Substance: ELEXACAFTOR\IVACAFTOR\TEZACAFTOR
     Indication: CYSTIC FIBROSIS
     Dosage: ELEXACAFTOR 100 MG/ TEZACAFTOR 50 MG/ IVACAFTOR 75 MG AND IVACAFTOR 150 MG, FREQ UNK
     Route: 048

REACTIONS (1)
  - Breast mass [Unknown]
